FAERS Safety Report 11831263 (Version 1)
Quarter: 2015Q4

REPORT INFORMATION
  Report Type: Spontaneous
  Country: US (occurrence: None)
  Receive Date: 20151211
  Receipt Date: 20151211
  Transmission Date: 20160305
  Serious: Yes (Hospitalization, Other)
  Sender: FDA-Public Use
  Company Number: None

PATIENT
  Age: 60 Year
  Sex: Female
  Weight: 56.7 kg

DRUGS (6)
  1. ATARAX [Concomitant]
     Active Substance: HYDROXYZINE\HYDROXYZINE HYDROCHLORIDE
  2. ACTIMMUNE [Suspect]
     Active Substance: INTERFERON GAMMA-1B
     Indication: BLOOD DISORDER
     Dates: start: 20150618, end: 20150625
  3. MULTIVIT [Concomitant]
     Active Substance: VITAMINS
  4. L-GLUTAMINE /00503401/ [Concomitant]
     Active Substance: GLUTAMINE
  5. HCT [Concomitant]
     Active Substance: HYDROCHLOROTHIAZIDE
  6. PROBIOTIC [Concomitant]
     Active Substance: PROBIOTICS NOS

REACTIONS (12)
  - Vomiting [None]
  - Abdominal distension [None]
  - Malaise [None]
  - Fatigue [None]
  - Blood test abnormal [None]
  - Aspartate aminotransferase increased [None]
  - Alanine aminotransferase increased [None]
  - Diarrhoea [None]
  - Pyrexia [None]
  - Eructation [None]
  - Bandaemia [None]
  - Skin disorder [None]

NARRATIVE: CASE EVENT DATE: 20150625
